FAERS Safety Report 6438324-9 (Version None)
Quarter: 2009Q4

REPORT INFORMATION
  Report Type: 
  Country: None (occurrence: None)
  Receive Date: 20091112
  Receipt Date: 20091104
  Transmission Date: 20100525
  Serious: Yes (Other)
  Sender: FDA-Public Use
  Company Number: US-JNJFOC-20091101896

PATIENT
  Age: 68 Year
  Sex: Female
  Weight: 53.07 kg

DRUGS (5)
  1. IMODIUM MULTI-SYMPTOM RELIEF [Suspect]
     Route: 048
  2. IMODIUM MULTI-SYMPTOM RELIEF [Suspect]
     Indication: DIARRHOEA
     Route: 048
  3. ANTIHYPERTENSIVE [Concomitant]
     Indication: HYPERTENSION
     Route: 065
  4. STATINS NOS [Concomitant]
     Indication: BLOOD CHOLESTEROL INCREASED
     Route: 065
  5. POTASSIUM CHLORIDE [Concomitant]
     Route: 065

REACTIONS (2)
  - BLOOD GLUCOSE INCREASED [None]
  - PALPITATIONS [None]
